FAERS Safety Report 4702161-3 (Version None)
Quarter: 2005Q2

REPORT INFORMATION
  Report Type: 
  Country: None (occurrence: None)
  Receive Date: 20050629
  Receipt Date: 20050621
  Transmission Date: 20051028
  Serious: Yes (Other)
  Sender: FDA-Public Use
  Company Number: 200515868GDDC

PATIENT
  Sex: Male

DRUGS (1)
  1. LANTUS [Suspect]
     Indication: DIABETES MELLITUS
     Route: 058

REACTIONS (3)
  - AMNESIA [None]
  - MUSCULOSKELETAL STIFFNESS [None]
  - OCULAR ICTERUS [None]
